FAERS Safety Report 8114816-1 (Version None)
Quarter: 2012Q1

REPORT INFORMATION
  Report Type: 
  Country: None (occurrence: None)
  Receive Date: 20120206
  Receipt Date: 20120201
  Transmission Date: 20120608
  Serious: No
  Sender: FDA-Public Use
  Company Number: PHEH2012US002949

PATIENT
  Sex: Female
  Weight: 68.027 kg

DRUGS (3)
  1. SIMVASTATIN [Concomitant]
  2. TASIGNA [Suspect]
     Indication: LEUKAEMIA
     Dosage: 300 MG, Q12H
     Route: 048
     Dates: start: 20120101
  3. AMLODIPINE [Concomitant]

REACTIONS (2)
  - DECREASED APPETITE [None]
  - MUSCLE SPASMS [None]
